FAERS Safety Report 9624748 (Version 1)
Quarter: 2013Q4

REPORT INFORMATION
  Report Type: Spontaneous
  Country: FR (occurrence: FR)
  Receive Date: 20131015
  Receipt Date: 20131015
  Transmission Date: 20140711
  Serious: Yes (Other)
  Sender: FDA-Public Use
  Company Number: FR-ABBVIE-13P-056-1156332-00

PATIENT
  Sex: Female

DRUGS (3)
  1. KALETRA 200/50 [Suspect]
     Indication: PROPHYLAXIS AGAINST HIV INFECTION
  2. SEROQUEL XR [Interacting]
     Indication: BIPOLAR DISORDER
  3. TDF/FTC [Concomitant]
     Indication: PROPHYLAXIS AGAINST HIV INFECTION

REACTIONS (2)
  - Coma [Unknown]
  - Drug interaction [Unknown]
